FAERS Safety Report 9458336 (Version 1)
Quarter: 2013Q3

REPORT INFORMATION
  Report Type: Spontaneous
  Country: FR (occurrence: FR)
  Receive Date: 20130814
  Receipt Date: 20130814
  Transmission Date: 20140515
  Serious: Yes (Hospitalization, Other)
  Sender: FDA-Public Use
  Company Number: FR-PFIZER INC-2013234584

PATIENT
  Age: 55 Year
  Sex: Female

DRUGS (4)
  1. CORDARONE [Suspect]
     Indication: CARDIAC FLUTTER
     Dosage: UNK
     Route: 048
  2. ABILIFY [Interacting]
     Dosage: UNK,ONCE
     Route: 048
     Dates: start: 20130614, end: 20130614
  3. LAROXYL [Interacting]
     Indication: DEPRESSION
     Dosage: UNK
     Route: 048
  4. PREVISCAN [Concomitant]
     Indication: ATRIAL FIBRILLATION

REACTIONS (5)
  - Drug interaction [Recovered/Resolved]
  - Orthostatic hypotension [Recovered/Resolved]
  - Amnesia [Recovered/Resolved]
  - Facial bones fracture [Unknown]
  - Haematoma [Unknown]
